FAERS Safety Report 6030504-X (Version None)
Quarter: 2009Q1

REPORT INFORMATION
  Report Type: 
  Country: None (occurrence: None)
  Receive Date: 20090105
  Receipt Date: 20090105
  Transmission Date: 20090719
  Serious: Yes (Other)
  Sender: FDA-Public Use
  Company Number: None

PATIENT
  Age: 42 Year
  Sex: Female
  Weight: 102.0593 kg

DRUGS (1)
  1. TOPAMAX [Suspect]
     Indication: MIGRAINE
     Dosage: 50MG TWICE A DAY PO
     Route: 048
     Dates: start: 20081016, end: 20081218

REACTIONS (4)
  - BURNING SENSATION [None]
  - DYSGEUSIA [None]
  - HYPOAESTHESIA [None]
  - PARAESTHESIA [None]
